FAERS Safety Report 15735405 (Version 1)
Quarter: 2018Q4

REPORT INFORMATION
  Report Type: Spontaneous
  Country: IT (occurrence: IT)
  Receive Date: 20181218
  Receipt Date: 20181218
  Transmission Date: 20190205
  Serious: Yes (Other)
  Sender: FDA-Public Use
  Company Number: IT-HIKMA PHARMACEUTICALS USA INC.-IT-H14001-18-08930

PATIENT
  Age: 69 Year
  Weight: 70 kg

DRUGS (4)
  1. IRINOTECAN HIKMA [Suspect]
     Active Substance: IRINOTECAN
     Indication: RECTAL CANCER
     Dosage: CYCLICAL
     Route: 042
     Dates: start: 20170206, end: 20181126
  2. FLUOROURACIL TEVA [Suspect]
     Active Substance: FLUOROURACIL
     Indication: RECTAL NEOPLASM
     Dosage: CYCLICAL
     Route: 042
     Dates: start: 20170206, end: 20181126
  3. ERBITUX [Concomitant]
     Active Substance: CETUXIMAB
     Indication: RECTAL CANCER
     Dosage: CYCLICAL
     Dates: start: 20170206
  4. CALCIUM LEVOFOLINATE TEVA [Concomitant]
     Active Substance: LEVOLEUCOVORIN CALCIUM
     Indication: COLON CANCER
     Dosage: CYCLICAL
     Route: 042
     Dates: start: 20170206, end: 20181126

REACTIONS (2)
  - Diarrhoea [Recovered/Resolved]
  - Proctitis [Recovered/Resolved]

NARRATIVE: CASE EVENT DATE: 20170506
